FAERS Safety Report 5281496-2 (Version None)
Quarter: 2007Q1

REPORT INFORMATION
  Report Type: 
  Country: None (occurrence: None)
  Receive Date: 20070323
  Receipt Date: 20070323
  Transmission Date: 20070707
  Serious: No
  Sender: FDA-Public Use
  Company Number: None

PATIENT
  Sex: Female
  Weight: 85 kg

DRUGS (13)
  1. FEMARA [Suspect]
     Dosage: 2.5 MG
  2. LEVOXYL [Suspect]
     Dosage: 58 MCG DAILY
  3. AMBIEN [Concomitant]
  4. ASPIRIN [Concomitant]
  5. BENICAR [Concomitant]
  6. CENTRUM SILVER [Concomitant]
  7. DOXAZOSIN MESYLATE [Concomitant]
  8. EFFEXOR [Concomitant]
  9. KLOR-CON [Concomitant]
  10. LEVOXYL [Concomitant]
  11. LIPITOR [Concomitant]
  12. NAPROSYN [Concomitant]
  13. NEXIUM [Concomitant]

REACTIONS (1)
  - INSOMNIA [None]
